FAERS Safety Report 5404036-3 (Version None)
Quarter: 2007Q3

REPORT INFORMATION
  Report Type: 
  Country: None (occurrence: None)
  Receive Date: 20070730
  Receipt Date: 20070719
  Transmission Date: 20080115
  Serious: No
  Sender: FDA-Public Use
  Company Number: VNL_00609_2007

PATIENT
  Age: 47 Year
  Sex: Male

DRUGS (5)
  1. APOMORPHINE (APOMORPHINE) [Suspect]
     Indication: PARKINSON'S DISEASE
     Dosage: 7 MG PER HOUR FOR 3 YEARS FOR 18 HOURS PER DAY SUBCUTANEOUS), (5 MG UP TO 4 TIMES PER DAY SUBCUTANEO
     Route: 058
     Dates: start: 20020101, end: 20050101
  2. APOMORPHINE (APOMORPHINE) [Suspect]
     Indication: PARKINSON'S DISEASE
     Dosage: 7 MG PER HOUR FOR 3 YEARS FOR 18 HOURS PER DAY SUBCUTANEOUS), (5 MG UP TO 4 TIMES PER DAY SUBCUTANEO
     Route: 058
     Dates: start: 20020101, end: 20050101
  3. APOMORPHINE (APOMORPHINE) [Suspect]
     Indication: PARKINSON'S DISEASE
     Dosage: 6 MG PER HOUR FOR 2 YEARS SUBCUTANEOUS)
     Route: 058
     Dates: start: 20000101, end: 20020101
  4. LEVODOPA [Concomitant]
  5. CABERGOLINE [Concomitant]

REACTIONS (3)
  - HYPERSEXUALITY [None]
  - NEUROTRANSMITTER LEVEL ALTERED [None]
  - OBSESSIVE-COMPULSIVE DISORDER [None]
